FAERS Safety Report 13230481 (Version 2)
Quarter: 2017Q1

REPORT INFORMATION
  Report Type: Spontaneous
  Country: CA (occurrence: CA)
  Receive Date: 20170214
  Receipt Date: 20170220
  Transmission Date: 20170428
  Serious: Yes (Hospitalization)
  Sender: FDA-Public Use
  Company Number: CA-PFIZER INC-2017063153

PATIENT
  Age: 64 Year
  Sex: Female
  Weight: 78 kg

DRUGS (16)
  1. DETROL LA [Suspect]
     Active Substance: TOLTERODINE TARTRATE
     Dosage: 4 MG, QD
     Route: 065
  2. ALVESCO [Suspect]
     Active Substance: CICLESONIDE
     Dosage: 400 UG, UNK
     Route: 055
  3. STELARA [Suspect]
     Active Substance: USTEKINUMAB
     Dosage: UNK
     Route: 065
  4. ATENOLOL. [Suspect]
     Active Substance: ATENOLOL
     Dosage: 50 MG, QD
     Route: 048
  5. EZETROL [Suspect]
     Active Substance: EZETIMIBE
     Dosage: 10 MG, QD
     Route: 048
  6. SULCRATE [Suspect]
     Active Substance: SUCRALFATE
     Dosage: 1000 MG, QD
     Route: 065
  7. MONTELUKAST SODIUM. [Concomitant]
     Active Substance: MONTELUKAST SODIUM
     Dosage: UNK
     Route: 065
  8. AERIUS [Suspect]
     Active Substance: DESLORATADINE
     Dosage: 5 MG, QD
     Route: 048
  9. ECOTRIN [Suspect]
     Active Substance: ASPIRIN
     Dosage: UNK
     Route: 065
  10. IMIPRAMINE HYDROCHLORIDE. [Suspect]
     Active Substance: IMIPRAMINE HYDROCHLORIDE
     Dosage: 25 MG, BID
     Route: 065
  11. MAVIK [Suspect]
     Active Substance: TRANDOLAPRIL
     Dosage: 2 MG, QD
     Route: 065
  12. CLARITHROMYCIN. [Suspect]
     Active Substance: CLARITHROMYCIN
     Dosage: 100 MG, DAILY
     Route: 065
  13. CLOPIDOGREL BISULFATE. [Suspect]
     Active Substance: CLOPIDOGREL BISULFATE
     Dosage: 75 MG, QD
     Route: 065
  14. PANTOPRAZOLE [Suspect]
     Active Substance: PANTOPRAZOLE SODIUM
     Dosage: 40 MG, QD
     Route: 065
  15. CRESTOR [Suspect]
     Active Substance: ROSUVASTATIN CALCIUM
     Dosage: 20 MG, QD
     Route: 048
  16. DOMPERIDONE [Suspect]
     Active Substance: DOMPERIDONE
     Dosage: 10 MG, QD
     Route: 065

REACTIONS (3)
  - Paranoia [Recovered/Resolved]
  - Hallucination, auditory [Recovered/Resolved]
  - Psychotic disorder [Recovered/Resolved]
